FAERS Safety Report 15575153 (Version 1)
Quarter: 2018Q4

REPORT INFORMATION
  Report Type: Spontaneous
  Country: US (occurrence: US)
  Receive Date: 20181101
  Receipt Date: 20181101
  Transmission Date: 20190205
  Serious: No
  Sender: FDA-Public Use
  Company Number: US-BAYER-2018-203059

PATIENT
  Age: 62 Year
  Sex: Male
  Weight: 85.99 kg

DRUGS (1)
  1. ALEVE [Suspect]
     Active Substance: NAPROXEN SODIUM
     Indication: PAIN
     Dosage: 1 DF, UNK (1 EVERY 12 HOURS DOSE)
     Route: 048
     Dates: start: 20181030

REACTIONS (2)
  - Circumstance or information capable of leading to medication error [Unknown]
  - Product prescribing issue [Unknown]
